FAERS Safety Report 9474876 (Version 2)
Quarter: 2013Q3

REPORT INFORMATION
  Report Type: Spontaneous
  Country: PL (occurrence: PL)
  Receive Date: 20130823
  Receipt Date: 20130823
  Transmission Date: 20140515
  Serious: Yes (Congenital Anomaly, Other)
  Sender: FDA-Public Use
  Company Number: PL-BIOMARINAP-PL-2013-101364

PATIENT
  Sex: Male
  Weight: 2.2 kg

DRUGS (6)
  1. KUVAN [Suspect]
     Indication: TETRAHYDROBIOPTERIN DEFICIENCY
     Dosage: 0.65 MG/KG, QD
     Route: 064
  2. KUVAN [Suspect]
     Dosage: 1 MG/KG, QD
  3. LEVODOPA [Suspect]
     Indication: TETRAHYDROBIOPTERIN DEFICIENCY
     Dosage: 4.5 MG/KG, QD
     Route: 064
  4. OXITRIPTAN [Suspect]
     Indication: TETRAHYDROBIOPTERIN DEFICIENCY
     Dosage: 6.6 MG/KG, QD
     Route: 064
  5. PROGESTERONE [Concomitant]
     Indication: PROPHYLAXIS
     Route: 064
  6. MAGNESIUM [Concomitant]
     Indication: PROPHYLAXIS
     Route: 064

REACTIONS (4)
  - Foetal growth restriction [Unknown]
  - Pneumonia [Unknown]
  - Bronchitis [Unknown]
  - Foetal exposure during pregnancy [Recovered/Resolved]
